FAERS Safety Report 7379699-6 (Version None)
Quarter: 2011Q1

REPORT INFORMATION
  Report Type: 
  Country: None (occurrence: None)
  Receive Date: 20110329
  Receipt Date: 20110324
  Transmission Date: 20110831
  Serious: No
  Sender: FDA-Public Use
  Company Number: US-PFIZER INC-2011066036

PATIENT
  Sex: Female
  Weight: 44.444 kg

DRUGS (2)
  1. NEURONTIN [Suspect]
     Indication: HERPES ZOSTER
     Dosage: 300 MG, 2X/DAY
     Route: 048
     Dates: start: 20110309
  2. SYNTHROID [Concomitant]
     Indication: HYPOTHYROIDISM

REACTIONS (4)
  - PRURITUS [None]
  - INSOMNIA [None]
  - FATIGUE [None]
  - ANXIETY [None]
